FAERS Safety Report 10699743 (Version 1)
Quarter: 2014Q4

REPORT INFORMATION
  Report Type: Spontaneous
  Country: BR (occurrence: None)
  Receive Date: 20141229
  Receipt Date: 20141229
  Transmission Date: 20150529
  Serious: Yes (Hospitalization)
  Sender: FDA-Public Use
  Company Number: IG002784

PATIENT
  Age: 59 Year
  Sex: Male
  Weight: 90 kg

DRUGS (29)
  1. MICAFUNGIN [Concomitant]
     Active Substance: MICAFUNGIN
  2. BENADRYL [Concomitant]
     Active Substance: DIPHENHYDRAMINE HYDROCHLORIDE
  3. HEPARIN [Concomitant]
     Active Substance: HEPARIN SODIUM
  4. DIOVAN [Concomitant]
     Active Substance: VALSARTAN
  5. ACYCLOVIR /00587301/ [Concomitant]
     Active Substance: ACYCLOVIR
  6. VALTREX [Concomitant]
     Active Substance: VALACYCLOVIR HYDROCHLORIDE
  7. VALIUM [Concomitant]
     Active Substance: DIAZEPAM
  8. IZOFRAN /00955301/ [Concomitant]
  9. FUROSEMIDE. [Concomitant]
     Active Substance: FUROSEMIDE
  10. MEROPENEM. [Concomitant]
     Active Substance: MEROPENEM
  11. DIGESAN [Concomitant]
  12. KIN HIDRAT SPRAY [Concomitant]
  13. HUMECTOL D [Concomitant]
  14. FLEBOGAMMA 5% [Suspect]
     Active Substance: HUMAN IMMUNOGLOBULIN G
     Indication: BONE MARROW TRANSPLANT
     Route: 042
     Dates: start: 20141211, end: 20141211
  15. VANCOMYCIN [Concomitant]
     Active Substance: VANCOMYCIN
  16. CYCLOSPORIN [Concomitant]
     Active Substance: CYCLOSPORINE
  17. VANCOMYCIN [Concomitant]
     Active Substance: VANCOMYCIN
  18. HYDROCORTISONE SODIUM SUCCINATE [Concomitant]
     Active Substance: HYDROCORTISONE SODIUM SUCCINATE
  19. AMLODIPINE [Concomitant]
     Active Substance: AMLODIPINE BESYLATE
  20. PANTOPRAZOLE [Concomitant]
     Active Substance: PANTOPRAZOLE SODIUM
  21. RINOSORO SIC [Concomitant]
  22. DIMENHYDRINATE. [Concomitant]
     Active Substance: DIMENHYDRINATE
  23. ALDACTONE [Concomitant]
     Active Substance: SPIRONOLACTONE
  24. CELLCEPT [Concomitant]
     Active Substance: MYCOPHENOLATE MOFETIL\MYCOPHENOLATE MOFETIL HYDROCHLORIDE
  25. SIMVASTATIN. [Concomitant]
     Active Substance: SIMVASTATIN
  26. URSACOL [Concomitant]
     Active Substance: URSODIOL
  27. NOVALGIN [Concomitant]
     Active Substance: METAMIZOLE SODIUM
  28. SALINE [Concomitant]
     Active Substance: SODIUM CHLORIDE
  29. STILNOX [Concomitant]
     Active Substance: ZOLPIDEM TARTRATE

REACTIONS (10)
  - Hypertension [None]
  - Chills [None]
  - Pulmonary congestion [None]
  - Pyrexia [None]
  - Troponin T increased [None]
  - Chest pain [None]
  - Infusion related reaction [None]
  - Oxygen saturation decreased [None]
  - Drug hypersensitivity [None]
  - Respiratory failure [None]

NARRATIVE: CASE EVENT DATE: 20141211
